FAERS Safety Report 4977592-7 (Version None)
Quarter: 2006Q2

REPORT INFORMATION
  Report Type: 
  Country: None (occurrence: None)
  Receive Date: 20060414
  Receipt Date: 20060405
  Transmission Date: 20061013
  Serious: Yes (Hospitalization, Other)
  Sender: FDA-Public Use
  Company Number: HQWYE679006APR06

PATIENT
  Age: 61 Year
  Sex: Male

DRUGS (1)
  1. CORDARONE [Suspect]
     Indication: ATRIAL FIBRILLATION
     Dosage: 200 MG 1X PER 1 DAY

REACTIONS (4)
  - LUNG NEOPLASM [None]
  - PNEUMONITIS [None]
  - PULMONARY FUNCTION TEST ABNORMAL [None]
  - SOMATOSTATIN RECEPTOR SCAN ABNORMAL [None]
